FAERS Safety Report 12548829 (Version 1)
Quarter: 2016Q3

REPORT INFORMATION
  Report Type: Spontaneous
  Country: US (occurrence: None)
  Receive Date: 20160711
  Receipt Date: 20160711
  Transmission Date: 20161109
  Serious: Yes (Death)
  Sender: FDA-Public Use
  Company Number: None

PATIENT
  Age: 57 Year
  Sex: Female
  Weight: 75.75 kg

DRUGS (11)
  1. APIXIBAN 2.5 MG BRISTOL-MYERS SQUIBB [Suspect]
     Active Substance: APIXABAN
     Indication: THROMBOSIS PROPHYLAXIS
     Route: 048
     Dates: start: 20160605, end: 20160623
  2. METFORMIN [Concomitant]
     Active Substance: METFORMIN HYDROCHLORIDE
  3. FLUOXETINE [Concomitant]
     Active Substance: FLUOXETINE HYDROCHLORIDE
  4. BENADRYL [Concomitant]
     Active Substance: DIPHENHYDRAMINE HYDROCHLORIDE
  5. MACROCRYSTAL MONOHYDRATE [Concomitant]
  6. SENNA [Concomitant]
     Active Substance: SENNA LEAF\SENNOSIDES\SENNOSIDES A AND B
  7. NITROFURANTOIN. [Concomitant]
     Active Substance: NITROFURANTOIN
  8. BENZONATATE. [Concomitant]
     Active Substance: BENZONATATE
  9. HEPARIN FLUSH [Concomitant]
     Active Substance: HEPARIN SODIUM
  10. ACETAMINOPHEN. [Concomitant]
     Active Substance: ACETAMINOPHEN
  11. ALTEPLASE [Concomitant]
     Active Substance: ALTEPLASE

REACTIONS (3)
  - Anxiety [None]
  - Dyspnoea [None]
  - Malignant neoplasm progression [None]

NARRATIVE: CASE EVENT DATE: 20160703
